FAERS Safety Report 7720129-X (Version None)
Quarter: 2011Q3

REPORT INFORMATION
  Report Type: 
  Country: None (occurrence: None)
  Receive Date: 20110824
  Receipt Date: 20110809
  Transmission Date: 20111222
  Serious: Yes (Death, Life-Threatening, Hospitalization)
  Sender: FDA-Public Use
  Company Number: 2011MA011587

PATIENT
  Age: 25 Year
  Sex: Female

DRUGS (5)
  1. ZOPICLONE (ZOPICLONE) [Suspect]
     Indication: TOXICITY TO VARIOUS AGENTS
     Dosage: 0.06 UG/G ON AUTOPSY
  2. VENLAFAXINE HYDROCHLORIDE [Suspect]
     Dosage: 1.0 UG/G ON AUTOPSY
  3. O-DMV (NO PREF. NAME) [Suspect]
     Indication: TOXICITY TO VARIOUS AGENTS
     Dosage: 1.1 UG/G ON AUTOPSY
  4. O-DESMETHYLTRAMADOL (NO PREF. NAME) [Suspect]
     Indication: TOXICITY TO VARIOUS AGENTS
     Dosage: 0.8 UG/G ON AUTOPSY
  5. MITRAGYNINE (NO PREF. NAME) [Suspect]
     Indication: TOXICITY TO VARIOUS AGENTS
     Dosage: 0.02 UG/G ON AUTOPSY

REACTIONS (6)
  - LOSS OF CONSCIOUSNESS [None]
  - CARDIAC ARREST [None]
  - RESPIRATORY DEPRESSION [None]
  - TOXICITY TO VARIOUS AGENTS [None]
  - PULMONARY CONGESTION [None]
  - ACCIDENTAL OVERDOSE [None]
